FAERS Safety Report 21324289 (Version 3)
Quarter: 2022Q4

REPORT INFORMATION
  Report Type: Report from Study
  Country: US (occurrence: US)
  Receive Date: 20220912
  Receipt Date: 20221101
  Transmission Date: 20230113
  Serious: Yes (Death, Life-Threatening, Hospitalization, Other)
  Sender: FDA-Public Use
  Company Number: US-HORIZON THERAPEUTICS-HZN-2022-006947

PATIENT

DRUGS (8)
  1. UPLIZNA [Suspect]
     Active Substance: INEBILIZUMAB-CDON
     Indication: Neuromyelitis optica spectrum disorder
     Dosage: 300 MG (FIRST INFUSION)
     Route: 042
     Dates: start: 20220314, end: 202209
  2. UPLIZNA [Suspect]
     Active Substance: INEBILIZUMAB-CDON
     Dosage: 300 MG (SECOND INFUSION)
     Route: 042
     Dates: start: 20220328
  3. VENLAFAXINE [Concomitant]
     Active Substance: VENLAFAXINE HYDROCHLORIDE
     Indication: Product used for unknown indication
     Dosage: 150 MG
  4. PREGABALIN [Concomitant]
     Active Substance: PREGABALIN
     Indication: Product used for unknown indication
     Dosage: 200 MG, TID
  5. MONTELUKAST [Concomitant]
     Active Substance: MONTELUKAST SODIUM
     Indication: Product used for unknown indication
     Dosage: 10 MG
  6. METFORMIN [Concomitant]
     Active Substance: METFORMIN HYDROCHLORIDE
     Indication: Product used for unknown indication
     Dosage: 500 MG, BID
  7. NEOSTIGMINE [Concomitant]
     Active Substance: NEOSTIGMINE
  8. ZOSYN [Concomitant]
     Active Substance: PIPERACILLIN SODIUM\TAZOBACTAM SODIUM
     Indication: Product used for unknown indication

REACTIONS (16)
  - Neuromyelitis optica spectrum disorder [Fatal]
  - Neurogenic bowel [Fatal]
  - Intestinal pseudo-obstruction [Fatal]
  - Large intestine perforation [Fatal]
  - Abdominal infection [Fatal]
  - Pneumatosis [Unknown]
  - Anuria [Unknown]
  - Neurogenic bladder [Unknown]
  - Vulvovaginal candidiasis [Unknown]
  - Urinary tract infection [Unknown]
  - Condition aggravated [Unknown]
  - Dyspnoea [Unknown]
  - Atelectasis [Unknown]
  - Hypotension [Unknown]
  - Lactic acidosis [Unknown]
  - Leukocytosis [Unknown]

NARRATIVE: CASE EVENT DATE: 20220101
